FAERS Safety Report 12731531 (Version 6)
Quarter: 2020Q2

REPORT INFORMATION
  Report Type: Spontaneous
  Country: US (occurrence: US)
  Receive Date: 20160912
  Receipt Date: 20200518
  Transmission Date: 20200713
  Serious: Yes (Life-Threatening, Hospitalization, Other)
  Sender: FDA-Public Use
  Company Number: US-ASTRAZENECA-2016SE93531

PATIENT
  Age: 26202 Day
  Sex: Male

DRUGS (46)
  1. PRILOSEC [Suspect]
     Active Substance: OMEPRAZOLE MAGNESIUM
     Indication: PEPTIC ULCER
     Route: 048
     Dates: start: 1998
  2. NITROSTAT [Concomitant]
     Active Substance: NITROGLYCERIN
  3. RESTORIL [Concomitant]
     Active Substance: TEMAZEPAM
  4. SIMVASTATIN. [Concomitant]
     Active Substance: SIMVASTATIN
     Route: 065
     Dates: start: 20100618
  5. PRILOSEC [Suspect]
     Active Substance: OMEPRAZOLE MAGNESIUM
     Indication: GASTROOESOPHAGEAL REFLUX DISEASE
     Route: 048
     Dates: start: 1998
  6. PRILOSEC [Suspect]
     Active Substance: OMEPRAZOLE MAGNESIUM
     Indication: GASTRIC DISORDER
     Dosage: 20.0MG UNKNOWN
     Route: 048
     Dates: start: 2010, end: 2013
  7. MORPHINE [Concomitant]
     Active Substance: MORPHINE
     Dosage: 8 MG/ML SYRINGE
     Dates: start: 20000310
  8. PRILOSEC [Suspect]
     Active Substance: OMEPRAZOLE MAGNESIUM
     Indication: PEPTIC ULCER
     Dosage: 20.0MG UNKNOWN
     Route: 048
     Dates: start: 20100618
  9. FOSINOPRIL [Concomitant]
     Active Substance: FOSINOPRIL
     Route: 065
     Dates: start: 20100618
  10. PRILOSEC [Suspect]
     Active Substance: OMEPRAZOLE MAGNESIUM
     Indication: GASTRIC DISORDER
     Route: 048
     Dates: start: 1998
  11. PRILOSEC [Suspect]
     Active Substance: OMEPRAZOLE MAGNESIUM
     Indication: PEPTIC ULCER
     Dosage: 20.0MG UNKNOWN
     Route: 048
     Dates: start: 20120404
  12. PERCOCET [Concomitant]
     Active Substance: ACETAMINOPHEN\OXYCODONE HYDROCHLORIDE
     Indication: PAIN
     Route: 065
     Dates: start: 2010
  13. K-DUR [Concomitant]
     Active Substance: POTASSIUM CHLORIDE
  14. PRAVASTATIN. [Concomitant]
     Active Substance: PRAVASTATIN
     Indication: BLOOD CHOLESTEROL INCREASED
     Dates: start: 2010
  15. PANTOPRAZOLE [Concomitant]
     Active Substance: PANTOPRAZOLE
     Dosage: PROTONIX
     Route: 048
     Dates: start: 20121207
  16. PRILOSEC OTC [Suspect]
     Active Substance: OMEPRAZOLE MAGNESIUM
     Indication: GASTRIC DISORDER
     Route: 048
     Dates: start: 2003
  17. ASPIRIN. [Concomitant]
     Active Substance: ASPIRIN
     Dates: start: 20120404
  18. ALBUT [Concomitant]
     Dosage: INHAL SOLN
     Dates: start: 20120404
  19. MORPHINE [Concomitant]
     Active Substance: MORPHINE
     Dosage: 10 MG INJECTION
     Dates: start: 20010509
  20. ZESTRIL [Concomitant]
     Active Substance: LISINOPRIL
     Route: 048
     Dates: start: 20120409
  21. PRILOSEC [Suspect]
     Active Substance: OMEPRAZOLE MAGNESIUM
     Indication: GASTROOESOPHAGEAL REFLUX DISEASE
     Dosage: 20.0MG UNKNOWN
     Route: 048
     Dates: start: 2010, end: 2013
  22. PRILOSEC [Suspect]
     Active Substance: OMEPRAZOLE MAGNESIUM
     Indication: GASTROOESOPHAGEAL REFLUX DISEASE
     Dosage: 20.0MG UNKNOWN
     Route: 048
     Dates: start: 20120404
  23. ALLOPURINOL. [Concomitant]
     Active Substance: ALLOPURINOL
     Indication: GOUT
     Route: 065
     Dates: start: 2010
  24. SPIRONOLACTONE. [Concomitant]
     Active Substance: SPIRONOLACTONE
     Route: 065
     Dates: start: 20100618
  25. ATROPINE. [Concomitant]
     Active Substance: ATROPINE
  26. PANTOPRAZOLE [Concomitant]
     Active Substance: PANTOPRAZOLE
     Dates: start: 20120404
  27. MORPHINE [Concomitant]
     Active Substance: MORPHINE
     Dosage: 4MG TUBEX
     Dates: start: 20010509
  28. VITAMIN C [Concomitant]
     Active Substance: ASCORBIC ACID
     Route: 065
     Dates: start: 20100618
  29. PRILOSEC [Suspect]
     Active Substance: OMEPRAZOLE MAGNESIUM
     Indication: PEPTIC ULCER
     Dosage: 20.0MG UNKNOWN
     Route: 048
     Dates: start: 2010, end: 2013
  30. PRILOSEC [Suspect]
     Active Substance: OMEPRAZOLE MAGNESIUM
     Indication: GASTRIC DISORDER
     Dosage: 20.0MG UNKNOWN
     Route: 048
     Dates: start: 20120404
  31. PRILOSEC OTC [Suspect]
     Active Substance: OMEPRAZOLE MAGNESIUM
     Indication: GASTROOESOPHAGEAL REFLUX DISEASE
     Route: 048
     Dates: start: 2003
  32. PRILOSEC OTC [Suspect]
     Active Substance: OMEPRAZOLE MAGNESIUM
     Indication: PEPTIC ULCER
     Route: 048
     Dates: start: 2003
  33. HUMULIN NOS [Concomitant]
     Active Substance: INSULIN HUMAN
  34. HUMALOG [Concomitant]
     Active Substance: INSULIN LISPRO
  35. METOLAZONE. [Concomitant]
     Active Substance: METOLAZONE
     Route: 065
     Dates: start: 20100618
  36. TUMS [Concomitant]
     Active Substance: CALCIUM CARBONATE
     Dates: start: 2000, end: 2009
  37. METOPROLOL. [Concomitant]
     Active Substance: METOPROLOL
  38. CEFAZOLIN [Concomitant]
     Active Substance: CEFAZOLIN
     Dates: start: 20010905
  39. PREVACID [Concomitant]
     Active Substance: LANSOPRAZOLE
     Dosage: BID
     Route: 048
     Dates: start: 20050404
  40. INDOMETHACIN. [Concomitant]
     Active Substance: INDOMETHACIN
     Route: 065
     Dates: start: 20100618
  41. PRILOSEC [Suspect]
     Active Substance: OMEPRAZOLE MAGNESIUM
     Indication: GASTROOESOPHAGEAL REFLUX DISEASE
     Dosage: 20.0MG UNKNOWN
     Route: 048
     Dates: start: 20100618
  42. PRILOSEC [Suspect]
     Active Substance: OMEPRAZOLE MAGNESIUM
     Indication: GASTRIC DISORDER
     Dosage: 20.0MG UNKNOWN
     Route: 048
     Dates: start: 20100618
  43. ASPIRIN. [Concomitant]
     Active Substance: ASPIRIN
     Dates: start: 1973
  44. LASIX [Concomitant]
     Active Substance: FUROSEMIDE
     Route: 065
     Dates: start: 20100618
  45. IBUPROFEN. [Concomitant]
     Active Substance: IBUPROFEN
     Dates: start: 20010905
  46. VERAPAMIL [Concomitant]
     Active Substance: VERAPAMIL HYDROCHLORIDE
     Route: 065
     Dates: start: 20100618

REACTIONS (6)
  - Chronic kidney disease [Unknown]
  - Renal injury [Unknown]
  - Renal failure [Unknown]
  - Tubulointerstitial nephritis [Unknown]
  - Acute kidney injury [Unknown]
  - End stage renal disease [Not Recovered/Not Resolved]

NARRATIVE: CASE EVENT DATE: 20050404
